FAERS Safety Report 20118904 (Version 1)
Quarter: 2021Q4

REPORT INFORMATION
  Report Type: Spontaneous
  Country: US (occurrence: US)
  Receive Date: 20211126
  Receipt Date: 20211126
  Transmission Date: 20220303
  Serious: Yes (Other)
  Sender: FDA-Public Use
  Company Number: US-009507513-2111USA007508

PATIENT
  Sex: Female

DRUGS (2)
  1. BRIDION [Suspect]
     Active Substance: SUGAMMADEX
     Indication: Neuromuscular blockade reversal
     Dosage: 200 MILLIGRAM, ONCE
     Route: 042
     Dates: start: 20211118, end: 20211118
  2. BRIDION [Suspect]
     Active Substance: SUGAMMADEX
     Dosage: 200 MILLIGRAM, ONCE
     Route: 042
     Dates: start: 20211118, end: 20211118

REACTIONS (5)
  - Ventricular tachycardia [Recovered/Resolved]
  - Anaphylactic reaction [Recovered/Resolved]
  - Muscle twitching [Recovered/Resolved]
  - Ill-defined disorder [Recovered/Resolved]
  - Multiple use of single-use product [Unknown]

NARRATIVE: CASE EVENT DATE: 20211118
